FAERS Safety Report 12983646 (Version 2)
Quarter: 2016Q4

REPORT INFORMATION
  Report Type: Spontaneous
  Country: IT (occurrence: IT)
  Receive Date: 20161129
  Receipt Date: 20161205
  Transmission Date: 20170207
  Serious: Yes (Other)
  Sender: FDA-Public Use
  Company Number: IT-PFIZER INC-2016544547

PATIENT
  Age: 52 Year
  Sex: Female

DRUGS (4)
  1. LEVOFLOXACIN. [Suspect]
     Active Substance: LEVOFLOXACIN
     Indication: LUNG CONSOLIDATION
     Dosage: 500 MG, UNK
  2. AZITHROMYCIN ANHYDROUS. [Suspect]
     Active Substance: AZITHROMYCIN ANHYDROUS
  3. METHYLPREDNISOLONE. [Suspect]
     Active Substance: METHYLPREDNISOLONE
     Indication: LUNG CONSOLIDATION
     Dosage: 25 MG, UNK
  4. CIPROFLOXACIN. [Suspect]
     Active Substance: CIPROFLOXACIN
     Dosage: 500 MG, UNK

REACTIONS (5)
  - Dyspnoea [Unknown]
  - Asthma [Unknown]
  - Product measured potency issue [Unknown]
  - Cough [Unknown]
  - Pseudomonas infection [Unknown]
